FAERS Safety Report 20544176 (Version 1)
Quarter: 2022Q1

REPORT INFORMATION
  Report Type: Spontaneous
  Country: US (occurrence: US)
  Receive Date: 20220303
  Receipt Date: 20220303
  Transmission Date: 20220423
  Serious: No
  Sender: FDA-Public Use
  Company Number: US-SA-SAC20220225000242

PATIENT
  Age: 24 Year
  Sex: Female

DRUGS (4)
  1. DUPIXENT [Suspect]
     Active Substance: DUPILUMAB
     Indication: Dermatitis atopic
     Dosage: 300 MG, QOW
     Route: 058
     Dates: start: 20200303
  2. METHYLERGOMETRINE [Concomitant]
     Active Substance: METHYLERGONOVINE MALEATE
     Dosage: 0.2 MG
  3. ACETAMINOPHEN [Concomitant]
     Active Substance: ACETAMINOPHEN
     Dosage: TAB 0.25/35
  4. MIRENA [Concomitant]
     Active Substance: LEVONORGESTREL

REACTIONS (3)
  - Injury [Not Recovered/Not Resolved]
  - Accident [Not Recovered/Not Resolved]
  - Neck injury [Not Recovered/Not Resolved]

NARRATIVE: CASE EVENT DATE: 20220201
